FAERS Safety Report 11413850 (Version 2)
Quarter: 2015Q3

REPORT INFORMATION
  Report Type: Report from Study
  Country: BR (occurrence: BR)
  Receive Date: 20150824
  Receipt Date: 20150903
  Transmission Date: 20151125
  Serious: Yes (Life-Threatening, Other)
  Sender: FDA-Public Use
  Company Number: PHHY2015BR074157

PATIENT
  Age: 80 Year
  Sex: Female
  Weight: 50 kg

DRUGS (2)
  1. LOSARTAN. [Concomitant]
     Active Substance: LOSARTAN
     Indication: HYPERTENSION
     Dosage: 1 DF, QD
     Route: 048
  2. ACLASTA [Suspect]
     Active Substance: ZOLEDRONIC ACID
     Indication: OSTEOPOROSIS
     Dosage: 5 MG, Q12MO
     Route: 042
     Dates: start: 2014

REACTIONS (7)
  - Deafness [Not Recovered/Not Resolved]
  - Malaise [Recovered/Resolved]
  - Vomiting [Recovered/Resolved]
  - Feeling abnormal [Recovered/Resolved]
  - Asthenia [Recovered/Resolved]
  - Memory impairment [Recovered/Resolved]
  - Blood pressure decreased [Recovering/Resolving]

NARRATIVE: CASE EVENT DATE: 2014
